FAERS Safety Report 21410664 (Version 1)
Quarter: 2022Q4

REPORT INFORMATION
  Report Type: Spontaneous
  Country: US (occurrence: None)
  Receive Date: 20221004
  Receipt Date: 20221004
  Transmission Date: 20230113
  Serious: Yes (Hospitalization)
  Sender: FDA-Public Use
  Company Number: None

PATIENT
  Age: 32 Year
  Sex: Male
  Weight: 95 kg

DRUGS (4)
  1. CYTARABINE [Suspect]
     Active Substance: CYTARABINE
     Dates: end: 20210806
  2. SPRYCEL [Suspect]
     Active Substance: DASATINIB
     Dates: end: 20210803
  3. METHOTREXATE [Suspect]
     Active Substance: METHOTREXATE
     Dates: end: 20210804
  4. PONATINIB [Suspect]
     Active Substance: PONATINIB
     Dates: end: 20210815

REACTIONS (10)
  - Chest pain [None]
  - Dyspnoea [None]
  - Pleural effusion [None]
  - Fistula [None]
  - Empyema [None]
  - Pancytopenia [None]
  - Palpitations [None]
  - Atelectasis [None]
  - Lung opacity [None]
  - Pneumonia [None]

NARRATIVE: CASE EVENT DATE: 20210816
